FAERS Safety Report 10175481 (Version 1)
Quarter: 2014Q2

REPORT INFORMATION
  Report Type: Spontaneous
  Country: IT (occurrence: IT)
  Receive Date: 20140515
  Receipt Date: 20140515
  Transmission Date: 20141212
  Serious: Yes (Hospitalization)
  Sender: FDA-Public Use
  Company Number: PHHY2014IT057516

PATIENT
  Age: 15 Year
  Sex: Male

DRUGS (1)
  1. CLARITHROMYCIN [Suspect]
     Indication: PNEUMONIA MYCOPLASMAL
     Route: 048
     Dates: start: 20140428, end: 20140428

REACTIONS (2)
  - Speech disorder [Recovered/Resolved]
  - Somnolence [Recovered/Resolved]
